FAERS Safety Report 12122474 (Version 1)
Quarter: 2016Q1

REPORT INFORMATION
  Report Type: Spontaneous
  Country: US (occurrence: US)
  Receive Date: 20160226
  Receipt Date: 20160226
  Transmission Date: 20160526
  Serious: Yes (Other)
  Sender: FDA-Public Use
  Company Number: US-AMGEN-USASP2016005765

PATIENT
  Age: 73 Year
  Sex: Female
  Weight: 72.56 kg

DRUGS (15)
  1. VITAMIN D                          /00107901/ [Concomitant]
     Active Substance: ERGOCALCIFEROL
  2. OMEPRAZOLE. [Concomitant]
     Active Substance: OMEPRAZOLE
  3. SINGULAIR [Concomitant]
     Active Substance: MONTELUKAST SODIUM
  4. SIMVASTATIN. [Suspect]
     Active Substance: SIMVASTATIN
     Indication: PRODUCT USED FOR UNKNOWN INDICATION
     Route: 065
  5. ZANTAC [Concomitant]
     Active Substance: RANITIDINE HYDROCHLORIDE
  6. VITAMIN B12 [Suspect]
     Active Substance: CYANOCOBALAMIN
     Indication: PRODUCT USED FOR UNKNOWN INDICATION
     Route: 065
  7. TIMOLOL. [Concomitant]
     Active Substance: TIMOLOL
  8. CITRACAL                           /00751520/ [Suspect]
     Active Substance: CALCIUM CITRATE
     Indication: PRODUCT USED FOR UNKNOWN INDICATION
     Route: 065
  9. PROLIA [Suspect]
     Active Substance: DENOSUMAB
     Indication: OSTEOPOROSIS POSTMENOPAUSAL
     Dosage: 60 MG/ML, Q6MO
     Route: 058
     Dates: start: 20110304
  10. OXYBUTYNIN [Concomitant]
     Active Substance: OXYBUTYNIN
  11. FISH OIL [Concomitant]
     Active Substance: FISH OIL
  12. VIT E                              /00110501/ [Concomitant]
     Active Substance: TOCOPHEROL
  13. TUMS                               /00193601/ [Concomitant]
     Active Substance: CALCIUM CARBONATE\MAGNESIUM CARBONATE\MAGNESIUM TRISILICATE
  14. MVI                                /01825701/ [Concomitant]
     Active Substance: VITAMINS
  15. ATENOLOL. [Concomitant]
     Active Substance: ATENOLOL

REACTIONS (12)
  - Pain in extremity [Not Recovered/Not Resolved]
  - Groin pain [Unknown]
  - Genitourinary tract infection [Unknown]
  - Arthritis [Unknown]
  - Underdose [Unknown]
  - Blood cholesterol increased [Unknown]
  - Musculoskeletal disorder [Unknown]
  - Cystitis [Unknown]
  - Kidney infection [Unknown]
  - Gait disturbance [Unknown]
  - Arthralgia [Unknown]
  - Tenderness [Unknown]

NARRATIVE: CASE EVENT DATE: 2011
